FAERS Safety Report 4336539-7 (Version None)
Quarter: 2004Q2

REPORT INFORMATION
  Report Type: 
  Country: None (occurrence: None)
  Receive Date: 20040408
  Receipt Date: 20040408
  Transmission Date: 20050107
  Serious: Yes (Hospitalization)
  Sender: FDA-Public Use
  Company Number: None

PATIENT
  Age: 66 Year
  Sex: Male
  Weight: 106.7 kg

DRUGS (4)
  1. AMIODARONE HCL [Suspect]
     Indication: ATRIAL FIBRILLATION
     Dosage: 200 MG QD, ORAL
     Route: 048
     Dates: start: 20031128, end: 20040308
  2. ATENOLOL [Suspect]
     Indication: ATRIAL FIBRILLATION
     Dosage: 50 MG QD, ORAL
     Route: 048
     Dates: start: 20031128, end: 20040308
  3. ATENOLOL [Suspect]
     Indication: HYPERTENSION
     Dosage: 50 MG QD, ORAL
     Route: 048
     Dates: start: 20031128, end: 20040308
  4. LISINOPRIL [Concomitant]

REACTIONS (2)
  - BRADYCARDIA [None]
  - HYPOTENSION [None]
